FAERS Safety Report 7270958-4 (Version None)
Quarter: 2011Q1

REPORT INFORMATION
  Report Type: 
  Country: None (occurrence: None)
  Receive Date: 20110202
  Receipt Date: 20110201
  Transmission Date: 20110831
  Serious: Yes (Other)
  Sender: FDA-Public Use
  Company Number: SE-PFIZER INC-2009306530

PATIENT
  Age: 53 Year
  Sex: Female
  Weight: 85 kg

DRUGS (1)
  1. SUTENT [Suspect]
     Indication: RENAL CANCER METASTATIC
     Dosage: 50 MG, 1X/DAY
     Route: 048
     Dates: start: 20081006

REACTIONS (20)
  - FREQUENT BOWEL MOVEMENTS [None]
  - HEADACHE [None]
  - DIZZINESS [None]
  - NASOPHARYNGITIS [None]
  - OEDEMA PERIPHERAL [None]
  - JOINT SWELLING [None]
  - DYSPEPSIA [None]
  - WEIGHT INCREASED [None]
  - NAUSEA [None]
  - HAEMATOCHEZIA [None]
  - VOMITING [None]
  - GINGIVAL PAIN [None]
  - FATIGUE [None]
  - BLOOD THYROID STIMULATING HORMONE ABNORMAL [None]
  - HAEMATOMA [None]
  - YELLOW SKIN [None]
  - PLATELET COUNT [None]
  - PRURITUS [None]
  - HYPERTENSION [None]
  - ABDOMINAL DISCOMFORT [None]
